FAERS Safety Report 24574656 (Version 6)
Quarter: 2025Q2

REPORT INFORMATION
  Report Type: Spontaneous
  Country: US (occurrence: US)
  Receive Date: 20241104
  Receipt Date: 20250410
  Transmission Date: 20250717
  Serious: No
  Sender: ROCHE
  Company Number: US-ROCHE-10000120468

PATIENT
  Age: 18 Year
  Sex: Male
  Weight: 68.04 kg

DRUGS (2)
  1. HEMLIBRA [Suspect]
     Active Substance: EMICIZUMAB-KXWH
     Indication: Factor VIII deficiency
     Dosage: STRENGTH: 105MG/0.7ML
     Route: 058
     Dates: start: 202409
  2. HEMLIBRA [Suspect]
     Active Substance: EMICIZUMAB-KXWH
     Dosage: STRENGTH: 105MG/.7ML
     Route: 058
     Dates: start: 202409

REACTIONS (6)
  - Arthralgia [Unknown]
  - Haemorrhage [Unknown]
  - Joint swelling [Unknown]
  - Off label use [Unknown]
  - Haemorrhage [Unknown]
  - Inflammation [Unknown]

NARRATIVE: CASE EVENT DATE: 20241209
